FAERS Safety Report 16320539 (Version 2)
Quarter: 2019Q2

REPORT INFORMATION
  Report Type: Spontaneous
  Country: BE (occurrence: BE)
  Receive Date: 20190516
  Receipt Date: 20190522
  Transmission Date: 20190711
  Serious: Yes (Other)
  Sender: FDA-Public Use
  Company Number: BE-ROCHE-2313594

PATIENT
  Age: 64 Year
  Sex: Male
  Weight: 81.5 kg

DRUGS (2)
  1. INNOHEP [Concomitant]
     Active Substance: TINZAPARIN SODIUM
     Indication: PULMONARY EMBOLISM
     Route: 058
     Dates: start: 20180503
  2. TECENTRIQ [Suspect]
     Active Substance: ATEZOLIZUMAB
     Indication: LUNG NEOPLASM MALIGNANT
     Route: 042
     Dates: start: 20180824, end: 20180824

REACTIONS (4)
  - Pyrexia [Recovered/Resolved]
  - Renal failure [Recovered/Resolved]
  - Rash [Recovered/Resolved]
  - Hepatitis [Recovered/Resolved]

NARRATIVE: CASE EVENT DATE: 20180903
